FAERS Safety Report 25109807 (Version 1)
Quarter: 2025Q1

REPORT INFORMATION
  Report Type: Spontaneous
  Country: FI (occurrence: FI)
  Receive Date: 20250324
  Receipt Date: 20250324
  Transmission Date: 20250409
  Serious: Yes (Other)
  Sender: ALEXION PHARMACEUTICALS
  Company Number: FI-Orion Corporation ORION PHARMA-TAMS2024-0003

PATIENT

DRUGS (2)
  1. BYETTA [Suspect]
     Active Substance: EXENATIDE
     Indication: Diabetes mellitus
     Route: 065
  2. TAMSULOSIN [Suspect]
     Active Substance: TAMSULOSIN
     Indication: Benign prostatic hyperplasia
     Dosage: STRENGTH: 0.4 MGTREATMENT STARTED ABOUT TWO YEARS AGO; 1 IN MORNING AND 1 IN EVENING

REACTIONS (8)
  - Large intestinal obstruction [Unknown]
  - Incorrect dose administered [Unknown]
  - Product complaint [Unknown]
  - Product residue present [Not Recovered/Not Resolved]
  - Constipation [Unknown]
  - Diarrhoea [Unknown]
  - Neuralgia [Unknown]
  - Pain [Unknown]
